FAERS Safety Report 15191297 (Version 1)
Quarter: 2018Q3

REPORT INFORMATION
  Report Type: Report from Study
  Country: US (occurrence: US)
  Receive Date: 20180724
  Receipt Date: 20180724
  Transmission Date: 20181010
  Serious: Yes (Hospitalization)
  Sender: FDA-Public Use
  Company Number: US-BAYER-2018-135595

PATIENT
  Age: 79 Year
  Sex: Female
  Weight: 65.31 kg

DRUGS (4)
  1. ADEMPAS [Suspect]
     Active Substance: RIOCIGUAT
     Indication: PULMONARY ARTERIAL HYPERTENSION
     Dosage: 2.5 MG, TID
     Route: 048
  2. OPSUMIT [Concomitant]
     Active Substance: MACITENTAN
     Dosage: UNK
  3. ADEMPAS [Suspect]
     Active Substance: RIOCIGUAT
     Indication: PULMONARY ARTERIAL HYPERTENSION
     Dosage: UNK
     Route: 048
     Dates: start: 20171220
  4. TYVASO [Concomitant]
     Active Substance: TREPROSTINIL
     Dosage: UNK

REACTIONS (8)
  - Abdominal rigidity [None]
  - Constipation [None]
  - Abdominal distension [None]
  - Abdominal pain lower [None]
  - Vomiting [None]
  - Nausea [None]
  - Infectious colitis [None]
  - Drug dose omission [None]

NARRATIVE: CASE EVENT DATE: 20180710
